FAERS Safety Report 10661510 (Version 1)
Quarter: 2014Q4

REPORT INFORMATION
  Report Type: Spontaneous
  Country: US (occurrence: US)
  Receive Date: 20141218
  Receipt Date: 20141218
  Transmission Date: 20150529
  Serious: Yes (Death, Hospitalization)
  Sender: FDA-Public Use
  Company Number: US-UPSHER-SMITH LABORATORIES, INC.-14003673

PATIENT
  Age: 50 Year
  Sex: Female

DRUGS (2)
  1. BENZTROPINE MESYLATE. [Suspect]
     Active Substance: BENZTROPINE MESYLATE
     Indication: INTENTIONAL OVERDOSE
     Dosage: UNK, UNK
     Route: 065
  2. BENZTROPINE MESYLATE. [Suspect]
     Active Substance: BENZTROPINE MESYLATE
     Indication: SUICIDE ATTEMPT

REACTIONS (5)
  - Anticholinergic syndrome [Unknown]
  - Toxicity to various agents [Fatal]
  - Completed suicide [Fatal]
  - Intentional overdose [Fatal]
  - Toxic encephalopathy [Not Recovered/Not Resolved]
